FAERS Safety Report 9403200 (Version 1)
Quarter: 2013Q3

REPORT INFORMATION
  Report Type: Spontaneous
  Country: US (occurrence: None)
  Receive Date: 20130715
  Receipt Date: 20130715
  Transmission Date: 20140515
  Serious: Yes (Hospitalization)
  Sender: FDA-Public Use
  Company Number: None

PATIENT
  Age: 62 Year
  Sex: Male
  Weight: 124 kg

DRUGS (1)
  1. PRAZOSIN [Suspect]
     Dates: start: 20130426

REACTIONS (1)
  - Hypotension [None]
